FAERS Safety Report 10166632 (Version 1)
Quarter: 2014Q2

REPORT INFORMATION
  Report Type: Spontaneous
  Country: GB (occurrence: GB)
  Receive Date: 20140512
  Receipt Date: 20140512
  Transmission Date: 20141212
  Serious: Yes (Other)
  Sender: FDA-Public Use
  Company Number: GB-BAYER-2014-065328

PATIENT
  Age: 28 Year
  Sex: Female
  Weight: 63 kg

DRUGS (1)
  1. MIRENA [Suspect]
     Indication: CONTRACEPTION
     Dosage: 20 MCG/24HR, CONT
     Route: 015

REACTIONS (27)
  - Abdominal discomfort [Not Recovered/Not Resolved]
  - Abdominal pain lower [Not Recovered/Not Resolved]
  - Acne [Recovered/Resolved]
  - Abdominal distension [Not Recovered/Not Resolved]
  - Contusion [Recovered/Resolved]
  - Confusional state [Recovered/Resolved with Sequelae]
  - Depression [Not Recovered/Not Resolved]
  - Diarrhoea [Not Recovered/Not Resolved]
  - Mental impairment [Recovered/Resolved with Sequelae]
  - Dizziness [Recovering/Resolving]
  - Fatigue [Not Recovered/Not Resolved]
  - Hot flush [Recovered/Resolved]
  - Headache [Recovered/Resolved with Sequelae]
  - Impaired healing [Recovering/Resolving]
  - Miliaria [Recovered/Resolved]
  - Pain in extremity [Recovered/Resolved]
  - Loss of libido [Not Recovered/Not Resolved]
  - Anosmia [Not Recovered/Not Resolved]
  - Myalgia [Recovered/Resolved]
  - Hypersomnia [Recovered/Resolved with Sequelae]
  - Abdominal pain upper [Not Recovered/Not Resolved]
  - Asthenopia [Not Recovered/Not Resolved]
  - Vaginal haemorrhage [Recovered/Resolved]
  - Vulvovaginal pain [Recovered/Resolved]
  - Vomiting [Recovered/Resolved]
  - Asthenia [Not Recovered/Not Resolved]
  - Weight increased [Recovering/Resolving]
